FAERS Safety Report 24889535 (Version 4)
Quarter: 2025Q1

REPORT INFORMATION
  Report Type: Spontaneous
  Country: GB (occurrence: GB)
  Receive Date: 20250127
  Receipt Date: 20250306
  Transmission Date: 20250408
  Serious: Yes (Death, Hospitalization, Other)
  Sender: MYLAN
  Company Number: GB-MYLANLABS-2025M1003168

PATIENT
  Age: 66 Year
  Sex: Female
  Weight: 55 kg

DRUGS (13)
  1. CLOZAPINE [Suspect]
     Active Substance: CLOZAPINE
     Indication: Schizophrenia
     Dosage: 200 MILLIGRAM, QD (ONCE DAILY)
     Dates: start: 20090927
  2. ACETAMINOPHEN [Concomitant]
     Active Substance: ACETAMINOPHEN
     Indication: Pain
     Dosage: 1 GRAM, QID (4 TIMES A DAY)
     Dates: start: 20250112
  3. ACETAMINOPHEN [Concomitant]
     Active Substance: ACETAMINOPHEN
     Indication: Pyrexia
  4. MEMANTINE [Concomitant]
     Active Substance: MEMANTINE
     Indication: Dementia
     Dosage: 10 MILLIGRAM, QD (DAILY)
     Dates: start: 20241010
  5. MIRTAZAPINE [Concomitant]
     Active Substance: MIRTAZAPINE
     Indication: Depression
     Dosage: 45 MILLIGRAM, PM (NIGHTLY)
     Dates: start: 20240403
  6. MORPHINE SULFATE [Concomitant]
     Active Substance: MORPHINE SULFATE
     Indication: Pain
     Dosage: UNK, BID (10MG NIGHTLY AND 5MG MORNING)
     Dates: start: 20240403
  7. ZOPICLONE [Concomitant]
     Active Substance: ZOPICLONE
     Indication: Sedation
     Dosage: 7.5 MILLIGRAM, PM (NIGHTLY)
     Dates: start: 20240403
  8. POLYETHYLENE GLYCOL 3350\POTASSIUM CHLORIDE\SODIUM BICARBONATE\SODIUM [Concomitant]
     Active Substance: POLYETHYLENE GLYCOL 3350\POTASSIUM CHLORIDE\SODIUM BICARBONATE\SODIUM CHLORIDE
     Indication: Constipation
     Dosage: 1 DOSAGE FORM, BID (1 SACHET TWICE DAILY)
     Dates: start: 20240403
  9. LANSOPRAZOLE [Concomitant]
     Active Substance: LANSOPRAZOLE
     Indication: Gastrooesophageal reflux disease
     Dosage: 15 MILLIGRAM, BID (TWICE DAILY)
     Dates: start: 20240403
  10. SCOPOLAMINE HYDROBROMIDE [Concomitant]
     Active Substance: SCOPOLAMINE HYDROBROMIDE
     Indication: Salivary hypersecretion
     Dosage: 300 MICROGRAM, BID (TWICE DAILY)
     Dates: start: 20240403
  11. DIAZEPAM [Concomitant]
     Active Substance: DIAZEPAM
     Indication: Agitation
     Dosage: 6 MILLIGRAM, TID (THREE TIMES A DAY)
     Dates: start: 20240403
  12. ANORO ELLIPTA [Concomitant]
     Active Substance: UMECLIDINIUM BROMIDE\VILANTEROL TRIFENATATE
     Indication: Chronic obstructive pulmonary disease
     Dosage: 1 DOSAGE FORM, AM (1 PUFF IN MORNING)
     Dates: start: 20240403
  13. CHOLECALCIFEROL [Concomitant]
     Active Substance: CHOLECALCIFEROL
     Indication: Vitamin D decreased
     Dosage: 800 INTERNATIONAL UNIT, AM (MORNING)
     Dates: start: 20240403

REACTIONS (8)
  - Death [Fatal]
  - Pneumonia [Recovered/Resolved]
  - Urinary tract infection [Recovered/Resolved]
  - Fall [Recovered/Resolved]
  - Infection [Unknown]
  - Head injury [Unknown]
  - Neutrophilia [Recovered/Resolved]
  - Leukocytosis [Recovered/Resolved]

NARRATIVE: CASE EVENT DATE: 20241231
